FAERS Safety Report 8415960-1 (Version None)
Quarter: 2012Q2

REPORT INFORMATION
  Report Type: 
  Country: None (occurrence: None)
  Receive Date: 20120606
  Receipt Date: 20110713
  Transmission Date: 20120825
  Serious: Yes (Other)
  Sender: FDA-Public Use
  Company Number: US-PFIZER INC-2011168362

PATIENT
  Age: 39 Year
  Sex: Female

DRUGS (2)
  1. TRANEXAMIC ACID [Suspect]
     Dosage: 1300 MG, 3 IN 1 DAY
     Dates: start: 20110531, end: 20110604
  2. IBUPROFEN [Suspect]
     Indication: HEADACHE
     Dosage: UNK
     Route: 048
     Dates: start: 20110607

REACTIONS (2)
  - ANAPHYLACTIC SHOCK [None]
  - DRUG INEFFECTIVE [None]
